FAERS Safety Report 5662479-7 (Version None)
Quarter: 2008Q1

REPORT INFORMATION
  Report Type: 
  Country: None (occurrence: None)
  Receive Date: 20080313
  Receipt Date: 20080305
  Transmission Date: 20080703
  Serious: Yes (Hospitalization, Other)
  Sender: FDA-Public Use
  Company Number: US-BAYER-US-2007-037481

PATIENT
  Age: 30 Year
  Sex: Female

DRUGS (1)
  1. MIRENA [Suspect]
     Route: 015
     Dates: end: 20080222

REACTIONS (5)
  - ENDOMETRIOSIS [None]
  - IUD MIGRATION [None]
  - PELVIC PAIN [None]
  - STOMACH MASS [None]
  - VAGINAL HAEMORRHAGE [None]
